FAERS Safety Report 8457093-4 (Version None)
Quarter: 2012Q2

REPORT INFORMATION
  Report Type: 
  Country: None (occurrence: None)
  Receive Date: 20120621
  Receipt Date: 20120606
  Transmission Date: 20120825
  Serious: Yes (Hospitalization, Disabling)
  Sender: FDA-Public Use
  Company Number: JP-BAYER-201011083BYL

PATIENT
  Age: 57 Year
  Sex: Female
  Weight: 44 kg

DRUGS (17)
  1. FAMOTIDINE [Concomitant]
     Indication: PRODUCT USED FOR UNKNOWN INDICATION
     Dosage: 10 MG (DAILY DOSE), , ORAL
     Route: 048
  2. OMNISCAN [Suspect]
     Indication: PERIPHERAL VASCULAR DISORDER
     Dosage: 15 ML (DAILY DOSE), , INTRAVENOUS
     Route: 042
     Dates: start: 20061003, end: 20061003
  3. LOSARTAN POTASSIUM [Concomitant]
     Indication: PRODUCT USED FOR UNKNOWN INDICATION
     Dosage: 25 MG (DAILY DOSE), , ORAL
     Route: 048
  4. MAGNEVIST [Suspect]
     Indication: ACOUSTIC NEUROMA
     Dosage: 20 ML (DAILY DOSE), ONCE, INTRAVENOUS
     Route: 042
     Dates: start: 20040930, end: 20040930
  5. DIAZEPAM [Concomitant]
     Indication: PRODUCT USED FOR UNKNOWN INDICATION
     Dosage: 5 MG (DAILY DOSE), , ORAL
     Route: 048
  6. CALCIUM CARBONATE [Concomitant]
     Indication: PRODUCT USED FOR UNKNOWN INDICATION
     Route: 048
  7. ALFAROL [Concomitant]
     Indication: PRODUCT USED FOR UNKNOWN INDICATION
     Dosage: 0.25 ?G (DAILY DOSE), , ORAL
     Route: 048
  8. VITAMIN B12 [Concomitant]
     Indication: PRODUCT USED FOR UNKNOWN INDICATION
     Dosage: 1.5 MG (DAILY DOSE), , ORAL
     Route: 048
  9. CARVEDILOL [Concomitant]
     Indication: PRODUCT USED FOR UNKNOWN INDICATION
     Dosage: 10 MG (DAILY DOSE), , ORAL
     Route: 048
  10. OMNISCAN [Suspect]
     Indication: ACOUSTIC NEUROMA
     Route: 042
     Dates: start: 20061001, end: 20061001
  11. OMNISCAN [Suspect]
     Dosage: 15 ML (DAILY DOSE), , INTRAVENOUS
     Route: 042
     Dates: start: 20071002, end: 20071002
  12. ASPIRIN [Concomitant]
     Indication: PRODUCT USED FOR UNKNOWN INDICATION
     Dosage: 100 MG (DAILY DOSE), , ORAL
     Route: 048
  13. ADENOSINE [Concomitant]
     Indication: PRODUCT USED FOR UNKNOWN INDICATION
     Dosage: 300 MG (DAILY DOSE), , ORAL
     Route: 048
  14. WARFARIN SODIUM [Concomitant]
     Indication: PRODUCT USED FOR UNKNOWN INDICATION
     Dosage: 3 MG (DAILY DOSE), , ORAL
     Route: 048
  15. MAGNEVIST [Suspect]
     Indication: NUCLEAR MAGNETIC RESONANCE IMAGING
  16. OMNISCAN [Suspect]
     Indication: NUCLEAR MAGNETIC RESONANCE IMAGING
     Dosage: 15 ML (DAILY DOSE), , INTRAVENOUS
     Route: 042
     Dates: start: 20051101, end: 20051101
  17. MUCODYNE [Concomitant]
     Indication: PRODUCT USED FOR UNKNOWN INDICATION
     Dosage: 750 MG (DAILY DOSE), , ORAL
     Route: 048

REACTIONS (1)
  - NEPHROGENIC SYSTEMIC FIBROSIS [None]
